FAERS Safety Report 6079777-8 (Version None)
Quarter: 2009Q1

REPORT INFORMATION
  Report Type: 
  Country: None (occurrence: None)
  Receive Date: 20090212
  Receipt Date: 20090204
  Transmission Date: 20090719
  Serious: Yes (Disabling)
  Sender: FDA-Public Use
  Company Number: 1000003882

PATIENT
  Age: 80 Year
  Sex: Female

DRUGS (7)
  1. ESCITALOPRAM [Suspect]
     Indication: ACUTE STRESS DISORDER
     Dosage: 10 MG (10 MG, 1 IN 1 D), ORAL
     Route: 048
     Dates: start: 20080911, end: 20080914
  2. ESCITALOPRAM [Suspect]
     Indication: GENERALISED ANXIETY DISORDER
     Dosage: 10 MG (10 MG, 1 IN 1 D), ORAL
     Route: 048
     Dates: start: 20080911, end: 20080914
  3. CALCHICHEW D3 FORTE [Concomitant]
  4. BETAHISTINE [Concomitant]
  5. ALENDRONIC ACID [Concomitant]
  6. VITAMIN B-12 [Concomitant]
  7. LANSOPRAZOLE [Concomitant]

REACTIONS (2)
  - DISTURBANCE IN ATTENTION [None]
  - EMOTIONAL DISORDER [None]
